FAERS Safety Report 7295150-9 (Version None)
Quarter: 2011Q1

REPORT INFORMATION
  Report Type: 
  Country: None (occurrence: None)
  Receive Date: 20110211
  Receipt Date: 20110211
  Transmission Date: 20110831
  Serious: No
  Sender: FDA-Public Use
  Company Number: None

PATIENT
  Age: 52 Year
  Sex: Female
  Weight: 50.8029 kg

DRUGS (2)
  1. VITAMIN D [Suspect]
     Indication: OSTEOPOROSIS
     Dosage: 50,000IU TWICE WEEKLY PO
     Route: 048
     Dates: start: 20100611, end: 20101011
  2. ACTONEL [Suspect]
     Indication: OSTEOPOROSIS
     Dosage: 150MG ONCE MONTHLY PO
     Route: 048
     Dates: start: 20100611, end: 20101011

REACTIONS (4)
  - BONE PAIN [None]
  - MUSCULOSKELETAL STIFFNESS [None]
  - FATIGUE [None]
  - HEADACHE [None]
